FAERS Safety Report 7180228-0 (Version None)
Quarter: 2010Q4

REPORT INFORMATION
  Report Type: 
  Country: None (occurrence: None)
  Receive Date: 20101209
  Receipt Date: 20101124
  Transmission Date: 20110411
  Serious: Yes (Hospitalization, Other)
  Sender: FDA-Public Use
  Company Number: KV201000250

PATIENT
  Age: 50 Year
  Sex: Female
  Weight: 60.8 kg

DRUGS (11)
  1. ISOSORBIDE MONONITRATE [Suspect]
     Indication: PRINZMETAL ANGINA
     Dosage: 30 MG, QD, ORAL
     Route: 048
     Dates: start: 20070926
  2. PRO-AIR (PROCATEROL HYDROCHLORIDE) [Concomitant]
  3. GABAPENTIN [Concomitant]
  4. NEXIUM [Concomitant]
  5. ALBUTEROL /00139501/ (SALBUTAMOL) [Concomitant]
  6. ASPIRIN [Concomitant]
  7. NORVASC /00972401/ (AMLODIPINE) [Concomitant]
  8. ZANTAC /00550802/ (RANITIDINE HYDROCHLORIDE) [Concomitant]
  9. AMITRIPTYLINE [Concomitant]
  10. FIORICET [Concomitant]
  11. TYLENOL /00020001/ (PARACETAMOL) [Concomitant]

REACTIONS (34)
  - ARTHRALGIA [None]
  - ATELECTASIS [None]
  - CEREBROVASCULAR ACCIDENT [None]
  - CHEST PAIN [None]
  - COMPUTERISED TOMOGRAM ABNORMAL [None]
  - CONFUSIONAL STATE [None]
  - DIPLOPIA [None]
  - DIZZINESS [None]
  - DYSPNOEA [None]
  - ERYTHEMA [None]
  - GROIN PAIN [None]
  - HEADACHE [None]
  - HEMIPARESIS [None]
  - HYPERAESTHESIA [None]
  - HYPOAESTHESIA FACIAL [None]
  - HYPOTENSION [None]
  - INTRACRANIAL ANEURYSM [None]
  - LOCAL SWELLING [None]
  - LYMPHOMA [None]
  - MASS [None]
  - MIGRAINE [None]
  - MOTOR DYSFUNCTION [None]
  - NAUSEA [None]
  - PAIN [None]
  - PAIN IN EXTREMITY [None]
  - PALPITATIONS [None]
  - PARAESTHESIA [None]
  - PLEURAL DISORDER [None]
  - REFUSAL OF TREATMENT BY PATIENT [None]
  - SARCOIDOSIS [None]
  - THINKING ABNORMAL [None]
  - VARICOSE VEIN [None]
  - VITH NERVE PARALYSIS [None]
  - VOMITING [None]
